FAERS Safety Report 10156972 (Version 1)
Quarter: 2014Q2

REPORT INFORMATION
  Report Type: Spontaneous
  Country: US (occurrence: None)
  Receive Date: 20140506
  Receipt Date: 20140506
  Transmission Date: 20141212
  Serious: No
  Sender: FDA-Public Use
  Company Number: None

PATIENT
  Age: 65 Year
  Sex: Female

DRUGS (1)
  1. ENBREL 50MG AMGEN [Suspect]
     Indication: RHEUMATOID ARTHRITIS
     Dosage: 50 MG, QW, SQ
     Dates: start: 20110830, end: 20140412

REACTIONS (4)
  - Anxiety [None]
  - Feeling jittery [None]
  - Memory impairment [None]
  - Drug dose omission [None]
